FAERS Safety Report 24387558 (Version 1)
Quarter: 2024Q4

REPORT INFORMATION
  Report Type: Spontaneous
  Country: US (occurrence: None)
  Receive Date: 20241001
  Receipt Date: 20241001
  Transmission Date: 20250115
  Serious: Yes (Hospitalization)
  Sender: Public
  Company Number: None

PATIENT
  Age: 71 Year
  Sex: Male
  Weight: 66 kg

DRUGS (2)
  1. APIXABAN [Suspect]
     Active Substance: APIXABAN
     Indication: Atrial fibrillation
     Dosage: 1.00 UNK - UNKNOWN TWICE A DAY ORL
     Route: 048
     Dates: start: 20230913
  2. ASPIRIN [Suspect]
     Active Substance: ASPIRIN

REACTIONS (5)
  - Anaemia [None]
  - Asthenia [None]
  - Fall [None]
  - Melaena [None]
  - Arteriovenous malformation [None]

NARRATIVE: CASE EVENT DATE: 20060101
